FAERS Safety Report 20562973 (Version 3)
Quarter: 2022Q1

REPORT INFORMATION
  Report Type: Spontaneous
  Country: US (occurrence: US)
  Receive Date: 20220307
  Receipt Date: 20220311
  Transmission Date: 20220423
  Serious: Yes (Hospitalization)
  Sender: FDA-Public Use
  Company Number: US-GLAND PHARMA LIMITED-2022US001026

PATIENT
  Age: 79 Year
  Sex: Male
  Weight: 100.7 kg

DRUGS (2)
  1. MILRINONE LACTATE [Suspect]
     Active Substance: MILRINONE LACTATE
     Indication: Cardiac failure congestive
     Dosage: UNK UNK, DAILY
     Route: 065
     Dates: end: 20211008
  2. MILRINONE LACTATE [Suspect]
     Active Substance: MILRINONE LACTATE
     Dosage: UNK
     Route: 065
     Dates: end: 20220127

REACTIONS (1)
  - Nausea [Recovered/Resolved]

NARRATIVE: CASE EVENT DATE: 20211005
